FAERS Safety Report 14154788 (Version 2)
Quarter: 2017Q4

REPORT INFORMATION
  Report Type: Spontaneous
  Country: US (occurrence: US)
  Receive Date: 20171102
  Receipt Date: 20171201
  Transmission Date: 20180321
  Serious: No
  Sender: FDA-Public Use
  Company Number: PHEH2017US034082

PATIENT
  Sex: Male

DRUGS (1)
  1. TYKERB [Suspect]
     Active Substance: LAPATINIB DITOSYLATE
     Indication: TINEA CRURIS
     Dosage: 250 MG, QD
     Route: 048
     Dates: start: 20171017, end: 20171017

REACTIONS (2)
  - Accidental exposure to product [Unknown]
  - Product use in unapproved indication [Unknown]
